FAERS Safety Report 9467311 (Version 1)
Quarter: 2013Q3

REPORT INFORMATION
  Report Type: Spontaneous
  Country: AU (occurrence: AU)
  Receive Date: 20130821
  Receipt Date: 20130821
  Transmission Date: 20140515
  Serious: Yes (Hospitalization)
  Sender: FDA-Public Use
  Company Number: AU-AMGEN-AUSSP2013058111

PATIENT
  Age: 58 Year
  Sex: Male

DRUGS (7)
  1. NEUPOGEN [Suspect]
     Indication: PRODUCT USED FOR UNKNOWN INDICATION
     Dosage: 480 MICROG DAILY FOR 6 DAYS
     Route: 065
  2. CYTARABINE [Suspect]
     Indication: ACUTE MYELOID LEUKAEMIA
     Dosage: 4000 MG, DAILY FOR 5 DAYS
     Route: 065
  3. FLUDARABINE PHOSPHATE [Suspect]
     Indication: ACUTE MYELOID LEUKAEMIA
     Dosage: 600 MG, DAILY FOR 5 DAYS, CYCLICAL
     Route: 065
  4. FAMCICLOVIR [Concomitant]
     Indication: PROPHYLAXIS
     Dosage: 250 MG, TWICE DAILY
  5. POSACONAZOLE [Concomitant]
     Indication: PROPHYLAXIS
     Dosage: 200 MG, THREE TIMES DAILY
     Route: 048
  6. TRIMETHOPRIM SULFAMETHOXAZOLE [Concomitant]
     Indication: PROPHYLAXIS
     Dosage: 800MG/160 MG, TWICE DAILY TWICE WEEKLY
  7. FLUCONAZOLE [Concomitant]
     Dosage: 200 MG, ONCE DAILY
     Route: 042

REACTIONS (1)
  - Febrile neutropenia [Unknown]
